FAERS Safety Report 23797565 (Version 1)
Quarter: 2024Q2

REPORT INFORMATION
  Report Type: Spontaneous
  Country: MY (occurrence: None)
  Receive Date: 20240430
  Receipt Date: 20240430
  Transmission Date: 20240716
  Serious: Yes (Other)
  Sender: FDA-Public Use
  Company Number: MY-Encube-000690

PATIENT
  Age: 45 Year
  Sex: Female

DRUGS (1)
  1. GENTAMICIN SULFATE [Suspect]
     Active Substance: GENTAMICIN SULFATE
     Indication: Ear infection
     Dosage: EAR DROPS, FOR TWO WEEKS

REACTIONS (7)
  - Ototoxicity [Recovered/Resolved]
  - Vestibular disorder [Recovered/Resolved]
  - Vertigo [Recovered/Resolved]
  - Vestibular nystagmus [Recovered/Resolved]
  - Gait disturbance [Recovered/Resolved]
  - Conductive deafness [Recovered/Resolved]
  - Off label use [Unknown]
